FAERS Safety Report 4273768-5 (Version None)
Quarter: 2004Q1

REPORT INFORMATION
  Report Type: 
  Country: None (occurrence: None)
  Receive Date: 20040114
  Receipt Date: 20031217
  Transmission Date: 20041129
  Serious: Yes (Hospitalization)
  Sender: FDA-Public Use
  Company Number: 6924

PATIENT
  Age: 65 Year
  Sex: Male

DRUGS (3)
  1. METHOTREXATE [Suspect]
     Indication: RHEUMATOID ARTHRITIS
     Dosage: 20 MG WEEKLY IM
     Route: 030
     Dates: start: 19951001, end: 20031120
  2. INFLIXIMAB [Suspect]
     Indication: RHEUMATOID ARTHRITIS
     Dosage: 3 MG/KG OTH IV
     Route: 042
     Dates: start: 20010620, end: 20030925
  3. PREDNISONE [Concomitant]

REACTIONS (1)
  - NON-HODGKIN'S LYMPHOMA [None]
